FAERS Safety Report 13176295 (Version 1)
Quarter: 2017Q1

REPORT INFORMATION
  Report Type: Spontaneous
  Country: FR (occurrence: FR)
  Receive Date: 20170201
  Receipt Date: 20170201
  Transmission Date: 20170428
  Serious: Yes (Hospitalization)
  Sender: FDA-Public Use
  Company Number: FR-SA-2017SA015325

PATIENT
  Age: 70 Year
  Sex: Female

DRUGS (4)
  1. PLAVIX [Suspect]
     Active Substance: CLOPIDOGREL BISULFATE
     Route: 065
  2. HEPARIN [Suspect]
     Active Substance: HEPARIN SODIUM
     Route: 065
  3. REOPRO [Suspect]
     Active Substance: ABCIXIMAB
     Dosage: 5.6ML + 1.9ML/H
     Route: 042
     Dates: start: 20161223, end: 20161223
  4. ASPEGIC [Suspect]
     Active Substance: ASPIRIN DL-LYSINE
     Route: 065

REACTIONS (1)
  - Thrombocytopenia [Recovering/Resolving]

NARRATIVE: CASE EVENT DATE: 20161223
